FAERS Safety Report 18106973 (Version 1)
Quarter: 2020Q3

REPORT INFORMATION
  Report Type: Spontaneous
  Country: US (occurrence: US)
  Receive Date: 20200803
  Receipt Date: 20200803
  Transmission Date: 20201103
  Serious: Yes (Death)
  Sender: FDA-Public Use
  Company Number: US-FRESENIUS KABI-FK202007901

PATIENT
  Age: 55 Year
  Sex: Male

DRUGS (6)
  1. MACITENTAN [Suspect]
     Active Substance: MACITENTAN
     Indication: DRUG THERAPY
     Route: 065
  2. EPOPROSTENOL. [Suspect]
     Active Substance: EPOPROSTENOL
     Route: 051
  3. MILRINONE (MANUFACTURER UNKOWN) [Suspect]
     Active Substance: MILRINONE
     Indication: DRUG THERAPY
     Dosage: UNKNOWN
     Route: 065
  4. EPOPROSTENOL. [Suspect]
     Active Substance: EPOPROSTENOL
     Route: 051
  5. EPOPROSTENOL. [Suspect]
     Active Substance: EPOPROSTENOL
     Indication: DRUG THERAPY
     Dosage: UNKNOWN
     Route: 065
  6. SILDENAFIL. [Suspect]
     Active Substance: SILDENAFIL
     Indication: DRUG THERAPY
     Route: 065

REACTIONS (2)
  - Pulmonary veno-occlusive disease [Fatal]
  - Disease progression [Fatal]
